FAERS Safety Report 6760091-X (Version None)
Quarter: 2010Q2

REPORT INFORMATION
  Report Type: 
  Country: None (occurrence: None)
  Receive Date: 20100608
  Receipt Date: 20100528
  Transmission Date: 20101027
  Serious: Yes (Hospitalization)
  Sender: FDA-Public Use
  Company Number: FR-JNJFOC-20100400415

PATIENT
  Age: 48 Year
  Sex: Female

DRUGS (6)
  1. REMICADE [Suspect]
     Indication: CROHN'S DISEASE
     Dosage: 13TH INFUSION
     Route: 042
  2. REMICADE [Suspect]
     Route: 042
  3. TIAPRIDAL [Suspect]
     Indication: DRUG USE FOR UNKNOWN INDICATION
  4. VALIUM [Concomitant]
  5. NORSET [Concomitant]
  6. EQUANIL [Concomitant]

REACTIONS (2)
  - GASTROINTESTINAL NECROSIS [None]
  - VASCULITIS [None]
